FAERS Safety Report 17247106 (Version 1)
Quarter: 2020Q1

REPORT INFORMATION
  Report Type: Report from Study
  Country: CA (occurrence: CA)
  Receive Date: 20200108
  Receipt Date: 20200108
  Transmission Date: 20200409
  Serious: Yes (Other)
  Sender: FDA-Public Use
  Company Number: CA-PFIZER INC-2020003024

PATIENT
  Age: 57 Year
  Sex: Female

DRUGS (10)
  1. METOPROLOL. [Concomitant]
     Active Substance: METOPROLOL
  2. ACTEMRA [Suspect]
     Active Substance: TOCILIZUMAB
     Dosage: 350 MG, 1 EVERY 4 WEEKS
     Route: 042
  3. ACTEMRA [Suspect]
     Active Substance: TOCILIZUMAB
     Dosage: 400 MG, 1 EVERY 4 WEEKS
     Route: 042
  4. SYNTHROID [Concomitant]
     Active Substance: LEVOTHYROXINE SODIUM
     Route: 065
  5. ACTEMRA [Suspect]
     Active Substance: TOCILIZUMAB
     Indication: RHEUMATOID ARTHRITIS
     Dosage: 560 MG, 1 EVERY 4 WEEKS
     Route: 042
  6. ACETYLSALICYLIC ACID [Concomitant]
     Active Substance: ASPIRIN
  7. ACTEMRA [Suspect]
     Active Substance: TOCILIZUMAB
     Indication: RHEUMATOID ARTHRITIS
     Dosage: 400 MG, 1 EVERY 4 WEEKS
     Route: 042
  8. CANDESARTAN. [Concomitant]
     Active Substance: CANDESARTAN
  9. ROSUVASTATIN CALCIUM. [Concomitant]
     Active Substance: ROSUVASTATIN CALCIUM
  10. METHOTREXATE SODIUM. [Suspect]
     Active Substance: METHOTREXATE SODIUM
     Route: 065

REACTIONS (8)
  - Liver function test increased [Unknown]
  - Leukopenia [Unknown]
  - Product dispensing error [Unknown]
  - Pain [Unknown]
  - Cytopenia [Unknown]
  - Platelet count decreased [Unknown]
  - Weight decreased [Unknown]
  - Joint swelling [Unknown]
